FAERS Safety Report 17534035 (Version 2)
Quarter: 2020Q1

REPORT INFORMATION
  Report Type: Spontaneous
  Country: US (occurrence: US)
  Receive Date: 20200312
  Receipt Date: 20200325
  Transmission Date: 20200409
  Serious: Yes (Other)
  Sender: FDA-Public Use
  Company Number: US-AKORN PHARMACEUTICALS-2020AKN00322

PATIENT
  Age: 16 Year
  Sex: Male
  Weight: 83 kg

DRUGS (2)
  1. MIRTAZAPINE. [Concomitant]
     Active Substance: MIRTAZAPINE
  2. MYORISAN [Suspect]
     Active Substance: ISOTRETINOIN
     Indication: ACNE
     Dosage: 60 MG, 1X/DAY
     Route: 048
     Dates: start: 20191230, end: 20200130

REACTIONS (1)
  - Anxiety [Recovering/Resolving]

NARRATIVE: CASE EVENT DATE: 20200130
